FAERS Safety Report 8469964 (Version 2)
Quarter: 2017Q1

REPORT INFORMATION
  Report Type: Spontaneous
  Country: FR (occurrence: FR)
  Receive Date: 20120321
  Receipt Date: 20170206
  Transmission Date: 20170429
  Serious: Yes (Hospitalization)
  Sender: FDA-Public Use
  Company Number: FR-ROCHE-1047834

PATIENT
  Age: 52 Year
  Sex: Female

DRUGS (5)
  1. AUGMENTIN [Concomitant]
     Active Substance: AMOXICILLIN\CLAVULANATE POTASSIUM
  2. HYDREA [Concomitant]
     Active Substance: HYDROXYUREA
     Route: 065
     Dates: start: 200912, end: 20101020
  3. PEGASYS [Suspect]
     Active Substance: PEGINTERFERON ALFA-2A
     Route: 058
     Dates: start: 201609, end: 201612
  4. PEGASYS [Suspect]
     Active Substance: PEGINTERFERON ALFA-2A
     Indication: MYELOFIBROSIS
     Dosage: 40 MCG WEEKLY DURING 4 WEEKS THEN FOLLOWED BY 90 MCG
     Route: 058
     Dates: start: 20100902, end: 20111214
  5. OROKEN [Concomitant]
     Active Substance: CEFIXIME

REACTIONS (3)
  - Product use issue [Unknown]
  - Off label use [Unknown]
  - Pericarditis [Recovered/Resolved]

NARRATIVE: CASE EVENT DATE: 20111219
